FAERS Safety Report 14127237 (Version 4)
Quarter: 2018Q3

REPORT INFORMATION
  Report Type: Report from Study
  Country: DE (occurrence: DE)
  Receive Date: 20171026
  Receipt Date: 20180824
  Transmission Date: 20181010
  Serious: Yes (Other)
  Sender: FDA-Public Use
  Company Number: DE-ROCHE-1518173

PATIENT
  Age: 65 Year
  Sex: Female
  Weight: 67 kg

DRUGS (15)
  1. BEVACIZUMAB. [Suspect]
     Active Substance: BEVACIZUMAB
     Indication: BREAST CANCER
     Route: 042
     Dates: start: 20140618, end: 20140618
  2. BEVACIZUMAB. [Suspect]
     Active Substance: BEVACIZUMAB
     Dosage: DAILY DOSE: 1000 MG MILLIGRAM(S) EVERY 3 WEEK
     Route: 042
     Dates: start: 201501
  3. XELODA [Suspect]
     Active Substance: CAPECITABINE
     Dosage: D1?D14 OF EACH 3 WEEKS CYCLE?ON 04/SEP/2013, 15/JAN/2015, 19/MAR/2015 SHE RECEIVED SUBSEQUENT DOSE O
     Route: 048
     Dates: start: 20130724, end: 20140402
  4. PANTOPRAZOL [Concomitant]
     Active Substance: PANTOPRAZOLE SODIUM
     Indication: PROPHYLAXIS AGAINST GASTROINTESTINAL ULCER
     Route: 048
     Dates: start: 20120622
  5. METOPROLOL. [Concomitant]
     Active Substance: METOPROLOL
     Indication: HYPERTENSION
     Route: 048
     Dates: start: 20131009
  6. AMLODIPINE [Concomitant]
     Active Substance: AMLODIPINE BESYLATE
     Route: 048
     Dates: start: 20150821
  7. L?THYROXIN [Concomitant]
     Active Substance: LEVOTHYROXINE SODIUM
     Indication: HYPOTHYROIDISM
     Route: 065
     Dates: start: 20150107
  8. BEVACIZUMAB. [Suspect]
     Active Substance: BEVACIZUMAB
     Indication: BREAST CANCER
     Dosage: DAILY DOSE: 1000 MG MILLIGRAM(S) EVERY 3 WEEK
     Route: 042
     Dates: start: 20130612, end: 20130612
  9. AMLODIPINE [Concomitant]
     Active Substance: AMLODIPINE BESYLATE
     Indication: HYPERTENSION
     Route: 048
     Dates: start: 20130904, end: 20131009
  10. RAMIPRIL. [Concomitant]
     Active Substance: RAMIPRIL
     Indication: HYPERTENSION
     Route: 048
     Dates: start: 20150107
  11. PACLITAXEL. [Concomitant]
     Active Substance: PACLITAXEL
     Indication: BREAST CANCER
     Route: 065
     Dates: start: 201501
  12. XELODA [Suspect]
     Active Substance: CAPECITABINE
     Indication: BREAST CANCER
     Dosage: D1?D14 OF EACH 3 WEEKS CYCLE
     Route: 048
     Dates: start: 20130612, end: 20130625
  13. XELODA [Suspect]
     Active Substance: CAPECITABINE
     Dosage: D1?D14 OF EACH 3 WEEKS CYCLE
     Route: 048
     Dates: start: 20140409, end: 20140423
  14. AMLODIPINE [Concomitant]
     Active Substance: AMLODIPINE BESYLATE
     Route: 048
     Dates: start: 20131009, end: 20150506
  15. JODID [Concomitant]
     Active Substance: IODINE
     Route: 048
     Dates: start: 20131009, end: 20141230

REACTIONS (1)
  - Metastases to liver [Not Recovered/Not Resolved]

NARRATIVE: CASE EVENT DATE: 20141209
